FAERS Safety Report 26071953 (Version 1)
Quarter: 2025Q4

REPORT INFORMATION
  Report Type: Spontaneous
  Country: US (occurrence: US)
  Receive Date: 20251120
  Receipt Date: 20251120
  Transmission Date: 20260117
  Serious: No
  Sender: PFIZER
  Company Number: US-PFIZER INC-202500223378

PATIENT
  Sex: Male

DRUGS (2)
  1. DOFETILIDE [Suspect]
     Active Substance: DOFETILIDE
     Dosage: 500 UG, 2X/DAY (IN THE MORNING AND AT NIGHT)
  2. PROPRANOLOL HYDROCHLORIDE [Concomitant]
     Active Substance: PROPRANOLOL HYDROCHLORIDE
     Dosage: UNK

REACTIONS (1)
  - Vestibular migraine [Unknown]
